FAERS Safety Report 17460695 (Version 1)
Quarter: 2020Q1

REPORT INFORMATION
  Report Type: Report from Study
  Country: ES (occurrence: US)
  Receive Date: 20200226
  Receipt Date: 20200226
  Transmission Date: 20200409
  Serious: Yes (Other)
  Sender: FDA-Public Use
  Company Number: ES-ASTELLAS-2020US007570

PATIENT
  Age: 34 Year
  Sex: Female

DRUGS (5)
  1. TACROLIMUS. [Suspect]
     Active Substance: TACROLIMUS
     Indication: RENAL TRANSPLANT
     Route: 065
  2. TACROLIMUS. [Suspect]
     Active Substance: TACROLIMUS
     Route: 065
  3. MMF [Concomitant]
     Active Substance: MYCOPHENOLATE MOFETIL
     Indication: RENAL TRANSPLANT
     Route: 065
  4. PREDNISOLONE. [Concomitant]
     Active Substance: PREDNISOLONE
     Route: 065
  5. PREDNISOLONE. [Concomitant]
     Active Substance: PREDNISOLONE
     Indication: RENAL TRANSPLANT
     Route: 065

REACTIONS (4)
  - Renal tubular injury [Unknown]
  - End stage renal disease [Unknown]
  - Toxicity to various agents [Unknown]
  - Pyelonephritis [Unknown]
